FAERS Safety Report 19693660 (Version 2)
Quarter: 2021Q4

REPORT INFORMATION
  Report Type: Spontaneous
  Country: CO (occurrence: CO)
  Receive Date: 20210813
  Receipt Date: 20211105
  Transmission Date: 20220304
  Serious: Yes (Other)
  Sender: FDA-Public Use
  Company Number: CO-AMGEN-COLSP2020095361

PATIENT
  Age: 59 Year
  Sex: Male
  Weight: 69 kg

DRUGS (8)
  1. MVASI [Suspect]
     Active Substance: BEVACIZUMAB-AWWB
     Indication: Colon cancer metastatic
     Dosage: 690 MILLIGRAM, Q3WK
     Route: 065
     Dates: end: 20190724
  2. MVASI [Suspect]
     Active Substance: BEVACIZUMAB-AWWB
     Indication: Rectal cancer
     Dosage: 760 MILLIGRAM, Q3WK
     Route: 065
     Dates: start: 20190729
  3. MVASI [Suspect]
     Active Substance: BEVACIZUMAB-AWWB
     Dosage: 690 MILLIGRAM, Q3WK
     Route: 065
     Dates: start: 20190724
  4. CAPECITABINE\OXALIPLATIN [Concomitant]
     Active Substance: CAPECITABINE\OXALIPLATIN
     Indication: Adenocarcinoma of colon
  5. OXALIPLATIN [Concomitant]
     Active Substance: OXALIPLATIN
     Indication: Rectal cancer
     Dosage: 200 MILLIGRAM, Q3WK
     Dates: end: 20190724
  6. OXALIPLATIN [Concomitant]
     Active Substance: OXALIPLATIN
     Dosage: 200 MILLIGRAM, Q3WK
     Dates: start: 20190724
  7. CAPECITABINE [Concomitant]
     Active Substance: CAPECITABINE
     Indication: Rectal cancer
     Dosage: 2500 MILLIGRAM, Q3WK
     Dates: end: 20200406
  8. CAPECITABINE [Concomitant]
     Active Substance: CAPECITABINE
     Dosage: 2500 MILLIGRAM, Q3WK
     Dates: start: 20200406

REACTIONS (3)
  - Liver disorder [Not Recovered/Not Resolved]
  - Thrombocytopenia [Not Recovered/Not Resolved]
  - Abdominal pain [Recovered/Resolved]

NARRATIVE: CASE EVENT DATE: 20200610
